FAERS Safety Report 5716304-6 (Version None)
Quarter: 2008Q2

REPORT INFORMATION
  Report Type: 
  Country: None (occurrence: None)
  Receive Date: 20080424
  Receipt Date: 20080422
  Transmission Date: 20081010
  Serious: Yes (Other)
  Sender: FDA-Public Use
  Company Number: D0056925A

PATIENT
  Age: 64 Year
  Sex: Female

DRUGS (3)
  1. ELONTRIL [Suspect]
     Indication: DEPRESSION
     Dosage: 150MG PER DAY
     Route: 048
     Dates: start: 20080124, end: 20080101
  2. LITHIUM CARBONATE [Concomitant]
     Indication: DEPRESSION
     Dosage: 450MG PER DAY
     Route: 048
  3. LORAZEPAM [Concomitant]
     Indication: DEPRESSION
     Dosage: 1MG PER DAY
     Route: 048

REACTIONS (15)
  - AGRAPHIA [None]
  - APHASIA [None]
  - DIZZINESS [None]
  - DYSARTHRIA [None]
  - DYSGRAPHIA [None]
  - DYSPHAGIA [None]
  - DYSPHEMIA [None]
  - FOOD AVERSION [None]
  - HEART RATE INCREASED [None]
  - INTENTIONAL OVERDOSE [None]
  - MEMORY IMPAIRMENT [None]
  - MYALGIA [None]
  - NAUSEA [None]
  - SALIVARY HYPERSECRETION [None]
  - WEIGHT DECREASED [None]
